FAERS Safety Report 9366861 (Version 1)
Quarter: 2013Q2

REPORT INFORMATION
  Report Type: Spontaneous
  Country: US (occurrence: US)
  Receive Date: 20130625
  Receipt Date: 20130625
  Transmission Date: 20140414
  Serious: No
  Sender: FDA-Public Use
  Company Number: US-ALEXION-A201301400

PATIENT
  Age: 49 Year
  Sex: Female

DRUGS (1)
  1. SOLIRIS 300MG [Suspect]
     Indication: PAROXYSMAL NOCTURNAL HAEMOGLOBINURIA
     Dosage: UNK
     Route: 042

REACTIONS (7)
  - Blood lactate dehydrogenase increased [Unknown]
  - Haemoglobinuria [Unknown]
  - Chromaturia [Unknown]
  - Night sweats [Unknown]
  - Fatigue [Unknown]
  - Abdominal pain [Unknown]
  - Chills [Unknown]
